FAERS Safety Report 9340810 (Version 2)
Quarter: 2013Q4

REPORT INFORMATION
  Report Type: Spontaneous
  Country: US (occurrence: US)
  Receive Date: 20130610
  Receipt Date: 20131113
  Transmission Date: 20140711
  Serious: Yes (Death, Hospitalization, Other)
  Sender: FDA-Public Use
  Company Number: US-B.I. PHARMACEUTICALS,INC./RIDGEFIELD-2013-BI-15921BP

PATIENT
  Age: 71 Year
  Sex: Female
  Weight: 81.2 kg

DRUGS (13)
  1. PRADAXA [Suspect]
     Indication: ANTICOAGULANT THERAPY
     Dosage: 300 MG
     Dates: start: 20110329, end: 20110726
  2. XANAX [Concomitant]
     Dosage: 0.25 MG
     Route: 048
  3. NADOLOL [Concomitant]
     Dosage: 40 MG
     Route: 048
  4. TALWIN NX [Concomitant]
     Indication: PAIN
     Route: 048
  5. PRILOSEC [Concomitant]
     Dosage: 20 MG
     Route: 048
  6. CYANOCOBALAMIN [Concomitant]
     Dosage: 3.3333 MCG
     Route: 048
  7. PAXIL [Concomitant]
     Route: 048
  8. CALCIUM [Concomitant]
     Dosage: 1000 MG
     Route: 048
  9. SPIRIVA [Concomitant]
     Dosage: 18 MCG
  10. LISINOPRIL [Concomitant]
     Dosage: 20 MG
     Route: 048
  11. GABAPENTIN [Concomitant]
     Dosage: 600 MG
     Route: 048
  12. ASPIRIN [Concomitant]
     Dosage: 81 MG
     Route: 048
  13. ERGOCALCIFEROL [Concomitant]
     Dosage: 7142.8571 U

REACTIONS (3)
  - Subdural haematoma [Fatal]
  - Femoral neck fracture [Unknown]
  - Fall [Unknown]
